FAERS Safety Report 12537345 (Version 1)
Quarter: 2016Q3

REPORT INFORMATION
  Report Type: Spontaneous
  Country: US (occurrence: US)
  Receive Date: 20160707
  Receipt Date: 20160707
  Transmission Date: 20161109
  Serious: No
  Sender: FDA-Public Use
  Company Number: US-TAKEDA-2016TUS011385

PATIENT
  Age: 40 Year
  Sex: Female

DRUGS (3)
  1. ENTYVIO [Suspect]
     Active Substance: VEDOLIZUMAB
     Indication: CROHN^S DISEASE
     Dosage: UNK
     Route: 042
  2. PREDNISONE. [Suspect]
     Active Substance: PREDNISONE
     Indication: PRODUCT USED FOR UNKNOWN INDICATION
     Dosage: 30 MG, UNK
     Route: 065
  3. IMURAN [Concomitant]
     Active Substance: AZATHIOPRINE
     Dosage: 100 MG, UNK

REACTIONS (8)
  - Abdominal pain [Unknown]
  - Balance disorder [Unknown]
  - Abdominal distension [Unknown]
  - Feeling abnormal [Unknown]
  - Mood swings [Unknown]
  - Flatulence [Unknown]
  - Pyrexia [Unknown]
  - Back pain [Unknown]
